APPROVED DRUG PRODUCT: ZITHROMAX
Active Ingredient: AZITHROMYCIN
Strength: EQ 100MG BASE/5ML
Dosage Form/Route: FOR SUSPENSION;ORAL
Application: N050710 | Product #001 | TE Code: AB
Applicant: PFIZER CHEMICALS DIV PFIZER INC
Approved: Oct 19, 1995 | RLD: Yes | RS: No | Type: RX